FAERS Safety Report 9072217 (Version 1)
Quarter: 2013Q1

REPORT INFORMATION
  Report Type: Report from Study
  Country: US (occurrence: US)
  Receive Date: 20130129
  Receipt Date: 20130129
  Transmission Date: 20140127
  Serious: No
  Sender: FDA-Public Use
  Company Number: US-ABBOTT-12P-163-0924346-00

PATIENT
  Age: 60 Year
  Sex: Male

DRUGS (5)
  1. HUMIRA 40 MG/0.8 ML PEN [Suspect]
     Indication: CROHN^S DISEASE
  2. TRICOR [Concomitant]
     Indication: BLOOD TRIGLYCERIDES INCREASED
     Dosage: 125 MG, 1 TAB DAILY
  3. CELEXA [Concomitant]
     Indication: DEPRESSION
     Dosage: 20 MG, 1 TAB DAILY
  4. AMOXICILLIN [Concomitant]
     Indication: POUCHITIS
  5. CIPRO [Concomitant]
     Indication: POUCHITIS

REACTIONS (6)
  - Blood testosterone decreased [Unknown]
  - Fatigue [Recovering/Resolving]
  - Blood cortisol decreased [Unknown]
  - Back pain [Recovering/Resolving]
  - Rash [Recovering/Resolving]
  - Herpes zoster [Recovering/Resolving]
